FAERS Safety Report 9993097 (Version 1)
Quarter: 2014Q1

REPORT INFORMATION
  Report Type: Report from Study
  Country: US (occurrence: US)
  Receive Date: 20140310
  Receipt Date: 20140310
  Transmission Date: 20141002
  Serious: No
  Sender: FDA-Public Use
  Company Number: US-ABBVIE-13P-163-1075607-00

PATIENT
  Age: 33 Year
  Sex: Female

DRUGS (4)
  1. LUPRON DEPOT [Suspect]
     Indication: ENDOMETRIOSIS
     Dosage: RECEIVED ONE DOSE
     Dates: start: 201202, end: 201202
  2. LUPRON DEPOT [Suspect]
     Indication: ENDOMETRIOSIS
     Dates: start: 20130328
  3. HYDROCODONE [Concomitant]
     Indication: PAIN
     Dosage: AS NEEDED
     Route: 048
     Dates: start: 201111
  4. IBUPROFEN [Concomitant]
     Indication: PAIN
     Dosage: 2 TO 3 TIMES A DAY, AS NEEDED
     Route: 048

REACTIONS (6)
  - Pain in extremity [Recovered/Resolved]
  - Pain [Recovered/Resolved]
  - Hot flush [Not Recovered/Not Resolved]
  - Abdominal pain lower [Not Recovered/Not Resolved]
  - Nausea [Not Recovered/Not Resolved]
  - Vomiting [Recovered/Resolved]
